FAERS Safety Report 11414823 (Version 2)
Quarter: 2016Q3

REPORT INFORMATION
  Report Type: Spontaneous
  Country: US (occurrence: US)
  Receive Date: 20150825
  Receipt Date: 20160905
  Transmission Date: 20161109
  Serious: Yes (Other)
  Sender: FDA-Public Use
  Company Number: US-TEVA-568836USA

PATIENT
  Age: 71 Year
  Sex: Female

DRUGS (30)
  1. ZOCOR [Concomitant]
     Active Substance: SIMVASTATIN
     Dosage: TOOK 3-4 YEARS
  2. MICROZIDE [Concomitant]
     Active Substance: HYDROCHLOROTHIAZIDE
  3. COZAAR [Concomitant]
     Active Substance: LOSARTAN POTASSIUM
  4. ZIPSOR [Suspect]
     Active Substance: DICLOFENAC POTASSIUM
     Dosage: 50 MILLIGRAM DAILY;
     Route: 065
     Dates: start: 2013, end: 201501
  5. GABAPENTIN. [Concomitant]
     Active Substance: GABAPENTIN
     Indication: BACK PAIN
     Dosage: 1200 MILLIGRAM DAILY;
  6. CRANBERRY. [Concomitant]
     Active Substance: CRANBERRY
  7. MAGNESIUM [Concomitant]
     Active Substance: MAGNESIUM
  8. OMEPRAZOLE MAGNESIUM. [Concomitant]
     Active Substance: OMEPRAZOLE MAGNESIUM
  9. GABAPENTIN. [Concomitant]
     Active Substance: GABAPENTIN
     Indication: NEURALGIA
  10. GLIPIZIDE. [Concomitant]
     Active Substance: GLIPIZIDE
  11. VITAMIN D [Concomitant]
     Active Substance: CHOLECALCIFEROL
  12. OXYCONTIN [Concomitant]
     Active Substance: OXYCODONE HYDROCHLORIDE
     Indication: BACK PAIN
  13. SIMVASTATIN. [Concomitant]
     Active Substance: SIMVASTATIN
     Dosage: TOOK 3-4 YEARS
  14. SIMVASTATIN. [Concomitant]
     Active Substance: SIMVASTATIN
     Dosage: TOOK 3-4 YEARS
  15. METFORMIN [Concomitant]
     Active Substance: METFORMIN HYDROCHLORIDE
  16. MILK THISTLE [Concomitant]
     Active Substance: MILK THISTLE
  17. FLEXERIL [Concomitant]
     Active Substance: CYCLOBENZAPRINE HYDROCHLORIDE
     Indication: BACK PAIN
  18. ZOCOR [Concomitant]
     Active Substance: SIMVASTATIN
     Dosage: TOOK 3-4 YEARS
  19. ASPIRIN. [Concomitant]
     Active Substance: ASPIRIN
  20. XANAX [Concomitant]
     Active Substance: ALPRAZOLAM
  21. TAMOXIFEN [Concomitant]
     Active Substance: TAMOXIFEN
  22. DICLOFENAC [Suspect]
     Active Substance: DICLOFENAC
     Indication: OSTEOARTHRITIS
     Dosage: 100 MILLIGRAM DAILY; TOOK 3-4 YEARS
     Route: 065
     Dates: start: 2005, end: 2013
  23. PERCOCET [Concomitant]
     Active Substance: ACETAMINOPHEN\OXYCODONE HYDROCHLORIDE
     Indication: BACK PAIN
     Dosage: 10-325 MG
  24. HYDROCHLOROTHIAZIDE. [Concomitant]
     Active Substance: HYDROCHLOROTHIAZIDE
  25. CINNAMON. [Concomitant]
     Active Substance: CINNAMON
  26. COLACE [Concomitant]
     Active Substance: DOCUSATE SODIUM
  27. ATARAX [Concomitant]
     Active Substance: HYDROXYZINE\HYDROXYZINE HYDROCHLORIDE
  28. TRICOR [Concomitant]
     Active Substance: FENOFIBRATE
  29. KEFLEX [Concomitant]
     Active Substance: CEPHALEXIN
  30. REMERON [Concomitant]
     Active Substance: MIRTAZAPINE

REACTIONS (1)
  - Nephropathy [Not Recovered/Not Resolved]

NARRATIVE: CASE EVENT DATE: 201501
